FAERS Safety Report 5309566-0 (Version None)
Quarter: 2007Q2

REPORT INFORMATION
  Report Type: 
  Country: None (occurrence: None)
  Receive Date: 20070427
  Receipt Date: 20070416
  Transmission Date: 20071010
  Serious: Yes (Hospitalization, Disabling)
  Sender: FDA-Public Use
  Company Number: FR-BAYER-200710277BFR

PATIENT
  Age: 72 Year
  Sex: Male

DRUGS (3)
  1. CIPROFLOXACIN HCL [Suspect]
     Indication: STAPHYLOCOCCAL INFECTION
     Dosage: TOTAL DAILY DOSE: 1.5 G  UNIT DOSE: 750 MG
     Route: 048
     Dates: start: 20070223, end: 20070302
  2. ZYVOX [Suspect]
     Indication: STAPHYLOCOCCAL INFECTION
     Dosage: TOTAL DAILY DOSE: 1.2 G  UNIT DOSE: 600 MG
     Route: 048
     Dates: start: 20070223, end: 20070302
  3. VANCOMYCIN [Concomitant]
     Indication: STAPHYLOCOCCAL INFECTION

REACTIONS (3)
  - ARTHRALGIA [None]
  - ARTHRITIS [None]
  - PYREXIA [None]
